FAERS Safety Report 12809256 (Version 1)
Quarter: 2016Q4

REPORT INFORMATION
  Report Type: Spontaneous
  Country: US (occurrence: US)
  Receive Date: 20161004
  Receipt Date: 20161004
  Transmission Date: 20170207
  Serious: Yes (Other)
  Sender: FDA-Public Use
  Company Number: US-ASTRAZENECA-2016SF03271

PATIENT

DRUGS (1)
  1. MERREM [Suspect]
     Active Substance: MEROPENEM
     Indication: INFECTION
     Dosage: UNKNOWN
     Route: 042

REACTIONS (1)
  - Apnoea [Unknown]
